FAERS Safety Report 5022125-2 (Version None)
Quarter: 2006Q2

REPORT INFORMATION
  Report Type: 
  Country: None (occurrence: None)
  Receive Date: 20060605
  Receipt Date: 20060517
  Transmission Date: 20061013
  Serious: Yes (Hospitalization)
  Sender: FDA-Public Use
  Company Number: S06-FRA-02002-01

PATIENT
  Age: 35 Year
  Sex: Male

DRUGS (5)
  1. CITALOPRAM HYDROBROMIDE [Suspect]
     Dosage: 20 MG BID PO
     Route: 048
     Dates: start: 20040101
  2. ACETAMINOPHEN W/ PROPOXYPHENE HCL [Suspect]
     Indication: BACK PAIN
     Dates: start: 20060501, end: 20060501
  3. OMEPRAZOLE [Suspect]
     Dosage: 1 QD PO
     Route: 048
     Dates: start: 20060501
  4. ACECLOFENAC (ACECLOFENAC) [Concomitant]
  5. COLTRAMYL                       (THIOCOLCHICOSIDE) [Concomitant]

REACTIONS (3)
  - BACK PAIN [None]
  - DRUG INTERACTION [None]
  - URINARY RETENTION [None]
